FAERS Safety Report 20920872 (Version 1)
Quarter: 2022Q2

REPORT INFORMATION
  Report Type: Spontaneous
  Country: US (occurrence: None)
  Receive Date: 20220606
  Receipt Date: 20220606
  Transmission Date: 20220721
  Serious: Yes (Other)
  Sender: FDA-Public Use
  Company Number: None

PATIENT
  Sex: Female

DRUGS (2)
  1. OMNICEF [Suspect]
     Active Substance: CEFDINIR
     Dosage: FREQUENCY : DAILY;?
  2. MUPIROCIN [Suspect]
     Active Substance: MUPIROCIN

REACTIONS (1)
  - Drug ineffective [None]
